FAERS Safety Report 7590114-X (Version None)
Quarter: 2011Q3

REPORT INFORMATION
  Report Type: 
  Country: None (occurrence: None)
  Receive Date: 20110705
  Receipt Date: 20110627
  Transmission Date: 20111222
  Serious: Yes (Hospitalization)
  Sender: FDA-Public Use
  Company Number: B0729727A

PATIENT
  Sex: Female

DRUGS (6)
  1. TYKERB [Suspect]
     Dosage: 1500MG PER DAY
     Route: 048
     Dates: start: 20100909, end: 20110510
  2. TYKERB [Suspect]
     Dosage: 1500MG PER DAY
     Route: 048
     Dates: start: 20100517, end: 20110627
  3. LOXOPROFEN [Concomitant]
     Dosage: 60MG PER DAY
     Route: 048
     Dates: start: 20110626
  4. PACLITAXEL [Suspect]
     Dosage: 117MG PER DAY
     Route: 042
     Dates: start: 20110614, end: 20110621
  5. CIPROFLOXACIN HCL [Concomitant]
     Dosage: 800MG PER DAY
     Route: 048
     Dates: start: 20110626
  6. PACLITAXEL [Suspect]
     Dosage: 117MG PER DAY
     Route: 042
     Dates: start: 20100908, end: 20100922

REACTIONS (1)
  - PNEUMONIA [None]
